FAERS Safety Report 18928563 (Version 3)
Quarter: 2021Q2

REPORT INFORMATION
  Report Type: Report from Study
  Country: US (occurrence: US)
  Receive Date: 20210223
  Receipt Date: 20210506
  Transmission Date: 20210717
  Serious: Yes (Other)
  Sender: FDA-Public Use
  Company Number: US-TAKEDA-2021TUS011402

PATIENT
  Sex: Female
  Weight: 67 kg

DRUGS (12)
  1. CUVITRU [Suspect]
     Active Substance: HUMAN IMMUNOGLOBULIN G
     Indication: IMMUNODEFICIENCY COMMON VARIABLE
  2. DIPHENHYDRAMINE. [Concomitant]
     Active Substance: DIPHENHYDRAMINE
  3. FAMOTIDINE. [Concomitant]
     Active Substance: FAMOTIDINE
  4. EPINEPHRINE. [Concomitant]
     Active Substance: EPINEPHRINE
  5. NUCALA [Concomitant]
     Active Substance: MEPOLIZUMAB
  6. BENADRYL [Concomitant]
     Active Substance: DIPHENHYDRAMINE HYDROCHLORIDE
  7. LMX [Concomitant]
     Route: 065
  8. PROTONIX [Concomitant]
     Active Substance: PANTOPRAZOLE SODIUM
  9. CUVITRU [Suspect]
     Active Substance: HUMAN IMMUNOGLOBULIN G
     Indication: CONGENITAL HYPOGAMMAGLOBULINAEMIA
     Dosage: 8 GRAM, 1/WEEK
     Route: 058
     Dates: start: 20210204
  10. ACETAMINOPHEN. [Concomitant]
     Active Substance: ACETAMINOPHEN
  11. SINGULAIR [Concomitant]
     Active Substance: MONTELUKAST SODIUM
  12. IPRATROPIUM/ALBUTEROL [Concomitant]
     Active Substance: ALBUTEROL\IPRATROPIUM

REACTIONS (10)
  - Anaphylactic reaction [Unknown]
  - Flushing [Unknown]
  - Nasopharyngitis [Unknown]
  - Chills [Unknown]
  - Urticaria [Unknown]
  - Sarcoidosis [Unknown]
  - Urticaria chronic [Unknown]
  - Anxiety [Unknown]
  - Pruritus [Unknown]
  - Dizziness [Recovered/Resolved]
